FAERS Safety Report 7357845-8 (Version None)
Quarter: 2011Q1

REPORT INFORMATION
  Report Type: 
  Country: None (occurrence: None)
  Receive Date: 20110317
  Receipt Date: 20110304
  Transmission Date: 20110831
  Serious: Yes (Other)
  Sender: FDA-Public Use
  Company Number: PHHY2010BR67453

PATIENT
  Sex: Female

DRUGS (1)
  1. TEGRETOL-XR [Suspect]
     Dosage: 200MG,
     Route: 048
     Dates: start: 20100301

REACTIONS (7)
  - HAEMORRHAGE [None]
  - MASS [None]
  - FEELING HOT [None]
  - BURNING SENSATION [None]
  - FEELING OF DESPAIR [None]
  - DIZZINESS [None]
  - PRURITUS [None]
